FAERS Safety Report 25543598 (Version 1)
Quarter: 2025Q3

REPORT INFORMATION
  Report Type: Spontaneous
  Country: GB (occurrence: GB)
  Receive Date: 20250711
  Receipt Date: 20250711
  Transmission Date: 20251021
  Serious: Yes (Other)
  Sender: RANBAXY
  Company Number: GB-SUN PHARMACEUTICAL INDUSTRIES LTD-2025RR-514704

PATIENT
  Age: 58 Year
  Sex: Male
  Weight: 102 kg

DRUGS (1)
  1. CIPROFLOXACIN [Suspect]
     Active Substance: CIPROFLOXACIN
     Indication: Diverticulitis
     Dosage: 500 MILLIGRAM, DAILY, 500MG TWICE A DAY
     Route: 065
     Dates: start: 20250623, end: 20250625

REACTIONS (5)
  - Medication error [Unknown]
  - Myalgia [Recovering/Resolving]
  - Fatigue [Recovering/Resolving]
  - Depressed mood [Recovering/Resolving]
  - Arthralgia [Recovering/Resolving]

NARRATIVE: CASE EVENT DATE: 20250623
